FAERS Safety Report 4918935-X (Version None)
Quarter: 2006Q1

REPORT INFORMATION
  Report Type: 
  Country: None (occurrence: None)
  Receive Date: 20060222
  Receipt Date: 20051125
  Transmission Date: 20060701
  Serious: Yes (Hospitalization, Other)
  Sender: FDA-Public Use
  Company Number: US-GLAXOSMITHKLINE-A0583659A

PATIENT
  Age: 25 Year
  Sex: Female

DRUGS (14)
  1. LAMICTAL [Suspect]
     Indication: DRUG USE FOR UNKNOWN INDICATION
     Route: 048
  2. ABILIFY [Suspect]
  3. METFORMIN HCL [Concomitant]
     Dosage: 500MG TWICE PER DAY
  4. YASMIN [Concomitant]
     Dosage: 3MG PER DAY
  5. ACTOS [Concomitant]
     Dosage: 25MG PER DAY
  6. NAPROXEN [Concomitant]
  7. ZYPREXA [Concomitant]
  8. ASCORBIC ACID [Concomitant]
  9. CENTRUM [Concomitant]
  10. ZINC [Concomitant]
  11. VITAMIN E [Concomitant]
  12. MAGNESIUM [Concomitant]
  13. SPIRONOLACTONE [Concomitant]
     Dosage: 50MG PER DAY
  14. DEXAMETHASONE SODIUM PHOSPHATE [Concomitant]
     Dosage: 5MG PER DAY

REACTIONS (3)
  - DRUG INTERACTION [None]
  - INFECTION [None]
  - RASH [None]
